FAERS Safety Report 23788114 (Version 2)
Quarter: 2024Q3

REPORT INFORMATION
  Report Type: Report from Study
  Country: US (occurrence: US)
  Receive Date: 20240426
  Receipt Date: 20240702
  Transmission Date: 20241017
  Serious: Yes (Hospitalization)
  Sender: NOVARTIS
  Company Number: US-002147023-NVSC2023US265178

PATIENT
  Age: 65 Year
  Sex: Female

DRUGS (1)
  1. KESIMPTA [Suspect]
     Active Substance: OFATUMUMAB
     Indication: Product used for unknown indication
     Dosage: UNK
     Route: 065
     Dates: start: 20231012

REACTIONS (3)
  - Loss of consciousness [Unknown]
  - Illness [Unknown]
  - Confusional state [Unknown]

NARRATIVE: CASE EVENT DATE: 20231212
